FAERS Safety Report 7947030-0 (Version None)
Quarter: 2011Q4

REPORT INFORMATION
  Report Type: 
  Country: None (occurrence: None)
  Receive Date: 20111129
  Receipt Date: 20110921
  Transmission Date: 20120403
  Serious: No
  Sender: FDA-Public Use
  Company Number: US-ASTRAZENECA-2011SE56799

PATIENT
  Age: 49 Year
  Sex: Female
  Weight: 55.3 kg

DRUGS (6)
  1. DOXYGYDLIE [Concomitant]
  2. PROMETIUM [Concomitant]
     Indication: HORMONE THERAPY
  3. WELLBUTRIN [Concomitant]
  4. VIMOVO [Suspect]
     Indication: PNEUMONITIS
     Dosage: 375/20 MG,DAILY
     Route: 048
     Dates: start: 20110917
  5. ESTRADIOL [Concomitant]
  6. NEURONTIN [Concomitant]

REACTIONS (3)
  - BLISTER [None]
  - PRURITUS [None]
  - HYPERSENSITIVITY [None]
